FAERS Safety Report 8587254-5 (Version None)
Quarter: 2012Q3

REPORT INFORMATION
  Report Type: 
  Country: None (occurrence: None)
  Receive Date: 20120810
  Receipt Date: 20110912
  Transmission Date: 20120928
  Serious: No
  Sender: FDA-Public Use
  Company Number: US-ASTRAZENECA-2011SE53678

PATIENT
  Age: 54 Year
  Sex: Female

DRUGS (1)
  1. ARIMIDEX [Suspect]
     Route: 048

REACTIONS (5)
  - FLUID RETENTION [None]
  - OEDEMA PERIPHERAL [None]
  - ADVERSE DRUG REACTION [None]
  - GAIT DISTURBANCE [None]
  - WEIGHT INCREASED [None]
